FAERS Safety Report 9707704 (Version 1)
Quarter: 2013Q4

REPORT INFORMATION
  Report Type: Spontaneous
  Country: NL (occurrence: NL)
  Receive Date: 20131125
  Receipt Date: 20131125
  Transmission Date: 20140711
  Serious: Yes (Death)
  Sender: FDA-Public Use
  Company Number: PHHY2013NL133692

PATIENT
  Age: 66 Year
  Sex: Male
  Weight: 80 kg

DRUGS (6)
  1. NALTREXON HCL [Suspect]
     Indication: ALCOHOL ABUSE
     Dosage: 50 MG, QD
     Route: 048
     Dates: start: 20130908
  2. CO APROVEL [Concomitant]
     Dosage: 1 DF, QD
     Route: 048
     Dates: start: 2009
  3. DOXAZOSINE [Concomitant]
     Dosage: 8 MG, QD
     Route: 048
     Dates: start: 2009
  4. ACETYLSALICYLZUUR [Concomitant]
     Dosage: 1 KEER PER DAG 1 STUK(S)
     Route: 048
     Dates: start: 2009
  5. VERAPAMIL [Concomitant]
     Dosage: 240 MG, QD
     Route: 048
     Dates: start: 2009
  6. ATORVASTATIN [Concomitant]
     Dosage: 10 MG, QD
     Route: 048
     Dates: start: 2009

REACTIONS (1)
  - Sudden death [Fatal]
